FAERS Safety Report 9878333 (Version 3)
Quarter: 2014Q1

REPORT INFORMATION
  Report Type: Report from Study
  Country: FI (occurrence: FI)
  Receive Date: 20140206
  Receipt Date: 20140326
  Transmission Date: 20141002
  Serious: Yes (Life-Threatening, Hospitalization, Other)
  Sender: FDA-Public Use
  Company Number: PHHY2014FI013953

PATIENT
  Age: 40 Year
  Sex: Male

DRUGS (8)
  1. LEPONEX [Suspect]
     Indication: SCHIZOPHRENIA
     Dosage: 550 MG PER DAY
  2. LEPONEX [Suspect]
     Dosage: 100 MG, UNK
  3. LEPONEX [Suspect]
     Dosage: 100 MG AND 25 MG, ENTIRE DOSE PER DAY WAS NOT REPORTED
  4. LEPONEX [Suspect]
     Dosage: UNK
     Route: 048
     Dates: start: 201402
  5. LEPONEX [Suspect]
     Dosage: 550 MG, DAILY
     Route: 048
  6. RISPERIDONE [Concomitant]
     Dosage: 2 MG, UNK
  7. CITALOPRAM [Concomitant]
     Dosage: 20 MG, UNK
  8. VALPROATE [Concomitant]
     Dosage: UNK UKN, UNK

REACTIONS (17)
  - Apparent life threatening event [Unknown]
  - Haemorrhage [Unknown]
  - Pneumothorax [Unknown]
  - Hepatic rupture [Unknown]
  - Hip fracture [Unknown]
  - Abnormal behaviour [Unknown]
  - Confusional state [Not Recovered/Not Resolved]
  - Anxiety [Not Recovered/Not Resolved]
  - Nerve injury [Not Recovered/Not Resolved]
  - Catatonia [Unknown]
  - Akathisia [Unknown]
  - Agitation [Unknown]
  - Infection [Recovered/Resolved]
  - Respiratory tract infection [Recovered/Resolved]
  - Multiple injuries [Unknown]
  - Restlessness [Unknown]
  - Neutrophil count decreased [Recovered/Resolved]
